FAERS Safety Report 23463601 (Version 4)
Quarter: 2024Q1

REPORT INFORMATION
  Report Type: Report from Study
  Country: ES (occurrence: ES)
  Receive Date: 20240131
  Receipt Date: 20240311
  Transmission Date: 20240410
  Serious: Yes (Hospitalization, Other)
  Sender: FDA-Public Use
  Company Number: ES-ABBVIE-5607346

PATIENT
  Age: 55 Year
  Sex: Female
  Weight: 65 kg

DRUGS (8)
  1. UPADACITINIB [Suspect]
     Active Substance: UPADACITINIB
     Indication: Rheumatoid arthritis
     Route: 048
     Dates: start: 20211005, end: 20231120
  2. METAMIZOLE [Concomitant]
     Active Substance: METAMIZOLE
     Indication: Product used for unknown indication
     Route: 048
     Dates: start: 20220530
  3. SARS-CoV-2 vaccine [Concomitant]
     Indication: COVID-19 immunisation
     Dosage: 1 IN ONCE
     Dates: start: 20210611, end: 20210611
  4. SARS-CoV-2 vaccine [Concomitant]
     Indication: COVID-19 immunisation
     Dosage: 1 IN ONCE
     Dates: start: 20210521, end: 20210521
  5. SARS-CoV-2 vaccine [Concomitant]
     Indication: COVID-19 immunisation
     Dosage: 1 IN ONCE
     Dates: start: 20211203, end: 20211203
  6. TETANUS AND DIPHTHERIA TOXOIDS ADSORBED (VACCINE) [Concomitant]
     Active Substance: CLOSTRIDIUM TETANI\CLOSTRIDIUM TETANI TOXOID ANTIGEN (FORMALDEHYDE INACTIVATED)\CORYNEBACTERIUM DIPH
     Indication: Prophylaxis
     Dates: start: 20210927, end: 20210927
  7. ETORICOXIB [Concomitant]
     Active Substance: ETORICOXIB
     Indication: Product used for unknown indication
     Dosage: FREQUENCY TEXT: ONCE
     Route: 048
     Dates: start: 20220822
  8. HEPARIN [Concomitant]
     Active Substance: HEPARIN SODIUM
     Indication: Prophylaxis
     Route: 003
     Dates: start: 20231128

REACTIONS (7)
  - Cholecystectomy [Recovered/Resolved]
  - Pulmonary mass [Not Recovered/Not Resolved]
  - Pancreatitis acute [Unknown]
  - Cholelithiasis [Recovered/Resolved]
  - Adrenal neoplasm [Not Recovered/Not Resolved]
  - Pneumonia [Recovered/Resolved]
  - Adrenal adenoma [Not Recovered/Not Resolved]

NARRATIVE: CASE EVENT DATE: 20230906
